FAERS Safety Report 4618230-2 (Version None)
Quarter: 2005Q1

REPORT INFORMATION
  Report Type: 
  Country: None (occurrence: None)
  Receive Date: 20050324
  Receipt Date: 20050317
  Transmission Date: 20050727
  Serious: Yes (Life-Threatening, Hospitalization)
  Sender: FDA-Public Use
  Company Number: US-ABBOTT-05P-163-0294412-00

PATIENT
  Age: 18 Year
  Sex: Female

DRUGS (1)
  1. FEROUS SULFATE (FERO GRADUMET TABLETS) [Suspect]
     Indication: SUICIDE ATTEMPT
     Dosage: 100 PILLS
     Route: 048

REACTIONS (13)
  - ABDOMINAL PAIN UPPER [None]
  - ABDOMINAL TENDERNESS [None]
  - DIARRHOEA [None]
  - FATIGUE [None]
  - HAEMATEMESIS [None]
  - HEPATIC FAILURE [None]
  - INTERNATIONAL NORMALISED RATIO INCREASED [None]
  - NAUSEA [None]
  - OVERDOSE [None]
  - PROTHROMBIN TIME PROLONGED [None]
  - SOMNOLENCE [None]
  - SUICIDAL IDEATION [None]
  - VOMITING [None]
